FAERS Safety Report 11912807 (Version 1)
Quarter: 2016Q1

REPORT INFORMATION
  Report Type: Spontaneous
  Country: GB (occurrence: GB)
  Receive Date: 20160113
  Receipt Date: 20160113
  Transmission Date: 20160526
  Serious: Yes (Hospitalization)
  Sender: FDA-Public Use
  Company Number: GB-HETERO LABS LTD-1046447

PATIENT
  Age: 79 Year
  Sex: Male

DRUGS (13)
  1. CALCICHEW D3 [Concomitant]
     Active Substance: CALCIUM\CHOLECALCIFEROL
  2. DEXTROSE. [Concomitant]
     Active Substance: DEXTROSE
  3. CALCIUM RESONIUM [Concomitant]
  4. SALBUTAMOL [Concomitant]
     Active Substance: ALBUTEROL
  5. QVAR [Concomitant]
     Active Substance: BECLOMETHASONE DIPROPIONATE
  6. INSULIN [Concomitant]
     Active Substance: INSULIN NOS
  7. SPIRONOLACTONE. [Concomitant]
     Active Substance: SPIRONOLACTONE
  8. PREDNISOLONE. [Concomitant]
     Active Substance: PREDNISOLONE
  9. TIOTROPIUM [Concomitant]
     Active Substance: TIOTROPIUM
  10. LOSARTAN. [Suspect]
     Active Substance: LOSARTAN
     Indication: HYPERTENSION
     Route: 048
  11. FUROSEMIDE. [Concomitant]
     Active Substance: FUROSEMIDE
     Route: 048
  12. TRIMETHOPRIM. [Concomitant]
     Active Substance: TRIMETHOPRIM
     Route: 048
     Dates: start: 20151216
  13. MORPHINE SULPHATE [Concomitant]
     Active Substance: MORPHINE SULFATE

REACTIONS (2)
  - Hyperkalaemia [Recovering/Resolving]
  - Acute kidney injury [Recovering/Resolving]
